FAERS Safety Report 8024165-8 (Version None)
Quarter: 2012Q1

REPORT INFORMATION
  Report Type: 
  Country: None (occurrence: None)
  Receive Date: 20120105
  Receipt Date: 20111219
  Transmission Date: 20120608
  Serious: Yes (Death)
  Sender: FDA-Public Use
  Company Number: US-PFIZER INC-2011310178

PATIENT
  Age: 39 Year
  Sex: Female

DRUGS (4)
  1. HYDROXYZINE [Suspect]
     Dosage: UNK
  2. LORAZEPAM [Suspect]
     Dosage: UNK
  3. ZIPRASIDONE HCL [Suspect]
     Dosage: UNK
  4. VENLAFAXINE HCL [Suspect]
     Dosage: UNK

REACTIONS (2)
  - COMPLETED SUICIDE [None]
  - TOXICITY TO VARIOUS AGENTS [None]
